FAERS Safety Report 11389874 (Version 1)
Quarter: 2015Q3

REPORT INFORMATION
  Report Type: Spontaneous
  Country: GB (occurrence: GB)
  Receive Date: 20150818
  Receipt Date: 20150818
  Transmission Date: 20151125
  Serious: Yes (Other)
  Sender: FDA-Public Use
  Company Number: GB-ROCHE-1621422

PATIENT
  Sex: Female

DRUGS (1)
  1. HERCEPTIN [Suspect]
     Active Substance: TRASTUZUMAB
     Indication: PRODUCT USED FOR UNKNOWN INDICATION
     Dosage: CYCLY 5
     Route: 058

REACTIONS (5)
  - Emotional disorder [Unknown]
  - Tinnitus [Unknown]
  - Urinary tract infection [Unknown]
  - Asthenia [Unknown]
  - Anxiety [Unknown]
